FAERS Safety Report 19085540 (Version 1)
Quarter: 2021Q2

REPORT INFORMATION
  Report Type: Spontaneous
  Country: US (occurrence: US)
  Receive Date: 20210402
  Receipt Date: 20210402
  Transmission Date: 20210717
  Serious: Yes (Death, Hospitalization)
  Sender: FDA-Public Use
  Company Number: US-DRREDDYS-USA/USA/21/0133789

PATIENT
  Age: 62 Year
  Sex: Male

DRUGS (2)
  1. SILVER SULFADIAZINE. [Suspect]
     Active Substance: SILVER SULFADIAZINE
     Indication: SEPSIS
     Route: 061
  2. HYDROXOCOBALAMIN [Suspect]
     Active Substance: HYDROXOCOBALAMIN
     Indication: TOXICITY TO VARIOUS AGENTS
     Route: 042

REACTIONS (1)
  - Methaemoglobinaemia [Fatal]
